FAERS Safety Report 5303469-3 (Version None)
Quarter: 2007Q2

REPORT INFORMATION
  Report Type: 
  Country: None (occurrence: None)
  Receive Date: 20070420
  Receipt Date: 20070413
  Transmission Date: 20071010
  Serious: Yes (Other)
  Sender: FDA-Public Use
  Company Number: 2007CG00406

PATIENT
  Age: 24643 Day
  Sex: Male
  Weight: 88 kg

DRUGS (4)
  1. CRESTOR [Suspect]
     Indication: PROPHYLAXIS
     Route: 048
     Dates: start: 20060210, end: 20070110
  2. ATENOLOL [Concomitant]
     Indication: CORONARY ARTERY DISEASE
     Route: 048
     Dates: start: 20000101
  3. PREVISCAN [Concomitant]
     Indication: CORONARY ARTERY DISEASE
     Dosage: 0.75 DF AND 0.5 DF
     Dates: start: 20000101
  4. OMACOR [Concomitant]
     Indication: CORONARY ARTERY DISEASE
     Dates: start: 20060101, end: 20070101

REACTIONS (1)
  - ERYTHEMA MULTIFORME [None]
